FAERS Safety Report 10892408 (Version 3)
Quarter: 2015Q1

REPORT INFORMATION
  Report Type: Spontaneous
  Country: US (occurrence: US)
  Receive Date: 20150306
  Receipt Date: 20150326
  Transmission Date: 20150721
  Serious: Yes (Hospitalization)
  Sender: FDA-Public Use
  Company Number: US-UNITED THERAPEUTICS-UNT-2015-001563

PATIENT
  Age: 83 Year
  Sex: Female
  Weight: 62.49 kg

DRUGS (4)
  1. OPSUMIT [Concomitant]
     Active Substance: MACITENTAN
     Indication: PRODUCT USED FOR UNKNOWN INDICATION
  2. REMODULIN [Suspect]
     Active Substance: TREPROSTINIL
     Indication: PULMONARY HYPERTENSION
     Dosage: 0.010 ?G/KG, CONTINUING
     Route: 041
     Dates: start: 20150209, end: 201503
  3. COUMADIN [Suspect]
     Active Substance: WARFARIN SODIUM
     Indication: PRODUCT USED FOR UNKNOWN INDICATION
  4. VENTAVIS [Concomitant]
     Active Substance: ILOPROST
     Indication: PRODUCT USED FOR UNKNOWN INDICATION

REACTIONS (5)
  - Diverticulitis [Unknown]
  - Respiratory failure [Not Recovered/Not Resolved]
  - Neuralgia [Not Recovered/Not Resolved]
  - Injection site discolouration [Unknown]
  - Injection site oedema [Recovered/Resolved]

NARRATIVE: CASE EVENT DATE: 201502
